FAERS Safety Report 6468106-3 (Version None)
Quarter: 2009Q4

REPORT INFORMATION
  Report Type: 
  Country: None (occurrence: None)
  Receive Date: 20091127
  Receipt Date: 20091015
  Transmission Date: 20100525
  Serious: Yes (Hospitalization)
  Sender: FDA-Public Use
  Company Number: 8010621

PATIENT
  Age: 79 Year
  Sex: Female

DRUGS (4)
  1. KEPPRA [Suspect]
     Indication: EPILEPSY
     Dosage: 500 MG 2/D
     Dates: start: 20000101
  2. KEPPRA [Suspect]
     Indication: EPILEPSY
     Dosage: 1500 MG /D PO
     Route: 048
     Dates: start: 20020101
  3. ERGENYL [Concomitant]
  4. HOMVIOTENSIN [Concomitant]

REACTIONS (4)
  - GASTRITIS EROSIVE [None]
  - IRON DEFICIENCY [None]
  - MYELODYSPLASTIC SYNDROME [None]
  - REFUSAL OF TREATMENT BY PATIENT [None]
